FAERS Safety Report 13929410 (Version 1)
Quarter: 2017Q3

REPORT INFORMATION
  Report Type: Spontaneous
  Country: CO (occurrence: CO)
  Receive Date: 20170901
  Receipt Date: 20170901
  Transmission Date: 20171127
  Serious: Yes (Other)
  Sender: FDA-Public Use
  Company Number: CO-BAYER-2017-165320

PATIENT
  Age: 21 Year
  Sex: Female

DRUGS (1)
  1. JAYDESS [Suspect]
     Active Substance: LEVONORGESTREL
     Indication: CONTRACEPTION
     Dosage: 14 MCG/24HR, CONT
     Route: 015

REACTIONS (4)
  - Drug ineffective [None]
  - Pelvic pain [Unknown]
  - Peritoneal haemorrhage [Unknown]
  - Ectopic pregnancy with contraceptive device [Unknown]
